FAERS Safety Report 15593578 (Version 2)
Quarter: 2018Q4

REPORT INFORMATION
  Report Type: Report from Study
  Country: US (occurrence: US)
  Receive Date: 20181107
  Receipt Date: 20181120
  Transmission Date: 20190205
  Serious: Yes (Death)
  Sender: FDA-Public Use
  Company Number: US-ACTELION-A-US2018-181290

PATIENT
  Age: 77 Year
  Sex: Female

DRUGS (5)
  1. OPSUMIT [Suspect]
     Active Substance: MACITENTAN
     Indication: PULMONARY ARTERIAL HYPERTENSION
     Dosage: 10 MG, QD
     Route: 048
     Dates: start: 20170511
  2. SOTALOL. [Concomitant]
     Active Substance: SOTALOL
     Dosage: 120 MG, QD
  3. METFORMIN [Concomitant]
     Active Substance: METFORMIN HYDROCHLORIDE
     Dosage: 500 UNK, BID
  4. GLIMEPIRIDE. [Concomitant]
     Active Substance: GLIMEPIRIDE
     Dosage: 4 MG, QD
  5. LASIX [Concomitant]
     Active Substance: FUROSEMIDE
     Dosage: 40 UNK, QD

REACTIONS (3)
  - Atrial fibrillation [Fatal]
  - Aortic stenosis [Fatal]
  - Transcatheter aortic valve implantation [Fatal]

NARRATIVE: CASE EVENT DATE: 20181014
